FAERS Safety Report 11763225 (Version 1)
Quarter: 2015Q4

REPORT INFORMATION
  Report Type: Spontaneous
  Country: US (occurrence: US)
  Receive Date: 20151120
  Receipt Date: 20151120
  Transmission Date: 20160304
  Serious: No
  Sender: FDA-Public Use
  Company Number: US-ELI_LILLY_AND_COMPANY-US201303002785

PATIENT
  Age: 59 Year
  Sex: Female

DRUGS (1)
  1. FORTEO [Suspect]
     Active Substance: TERIPARATIDE
     Dosage: UNK, UNKNOWN
     Route: 065

REACTIONS (8)
  - Foot fracture [Unknown]
  - Body height decreased [Unknown]
  - Rib fracture [Unknown]
  - Multiple fractures [Unknown]
  - Wrist fracture [Unknown]
  - Hand fracture [Unknown]
  - Pain [Unknown]
  - Ankle fracture [Unknown]

NARRATIVE: CASE EVENT DATE: 2012
